FAERS Safety Report 13414055 (Version 3)
Quarter: 2019Q3

REPORT INFORMATION
  Report Type: Spontaneous
  Country: US (occurrence: US)
  Receive Date: 20170406
  Receipt Date: 20190726
  Transmission Date: 20191004
  Serious: No
  Sender: FDA-Public Use
  Company Number: US-JNJFOC-20170318529

PATIENT
  Age: 13 Year
  Sex: Male

DRUGS (8)
  1. RISPERDAL [Suspect]
     Active Substance: RISPERIDONE
     Indication: INTERMITTENT EXPLOSIVE DISORDER
     Route: 048
     Dates: end: 200106
  2. RISPERDAL [Suspect]
     Active Substance: RISPERIDONE
     Dosage: VARYING DOSES OF 0.5 MG, 1.5 MG AND 02 MG
     Route: 048
     Dates: start: 20011127, end: 20011207
  3. RISPERDAL [Suspect]
     Active Substance: RISPERIDONE
     Route: 048
     Dates: start: 20030826, end: 20051102
  4. INVEGA SUSTENNA [Suspect]
     Active Substance: PALIPERIDONE PALMITATE
     Indication: PRODUCT USED FOR UNKNOWN INDICATION
     Route: 030
     Dates: start: 20110504, end: 20110601
  5. REMERON [Suspect]
     Active Substance: MIRTAZAPINE
     Indication: DEPRESSION
     Route: 048
  6. RISPERDAL [Suspect]
     Active Substance: RISPERIDONE
     Indication: BIPOLAR DISORDER
     Route: 048
     Dates: start: 20010108, end: 20010112
  7. RISPERDAL [Suspect]
     Active Substance: RISPERIDONE
     Indication: DEPRESSION
     Route: 048
     Dates: start: 20010313
  8. RISPERDAL [Suspect]
     Active Substance: RISPERIDONE
     Route: 048
     Dates: start: 20080424

REACTIONS (4)
  - Emotional distress [Unknown]
  - Gynaecomastia [Unknown]
  - Nausea [Recovered/Resolved]
  - Treatment noncompliance [Unknown]

NARRATIVE: CASE EVENT DATE: 200106
